FAERS Safety Report 24941056 (Version 2)
Quarter: 2025Q1

REPORT INFORMATION
  Report Type: Spontaneous
  Country: IQ (occurrence: IQ)
  Receive Date: 20250207
  Receipt Date: 20250220
  Transmission Date: 20250408
  Serious: Yes (Other)
  Sender: JUBILANT
  Company Number: None

PATIENT
  Age: 29 Year
  Sex: Female
  Weight: 160 kg

DRUGS (4)
  1. LAMOTRIGINE [Suspect]
     Active Substance: LAMOTRIGINE
     Indication: Myoclonic epilepsy
     Dosage: 25 MG, 2 TIMES PER DAY
     Route: 048
  2. LAMOTRIGINE [Suspect]
     Active Substance: LAMOTRIGINE
     Indication: Focal dyscognitive seizures
     Dosage: 50 MG, 2 TIMES PER DAY INCREMENT
     Route: 048
  3. LEVETIRACETAM [Concomitant]
     Active Substance: LEVETIRACETAM
     Indication: Myoclonic epilepsy
     Dosage: DOSAGE OF 500 MG, ADMINISTERED AS HALF A TABLET TWICE DAILY FOR THE FIRST WEEK
  4. LEVETIRACETAM [Concomitant]
     Active Substance: LEVETIRACETAM
     Dosage: 500 MG, 2 TIMES PER DAY
     Route: 065

REACTIONS (5)
  - Epstein-Barr virus infection reactivation [Unknown]
  - Cholecystitis [Recovered/Resolved]
  - Drug reaction with eosinophilia and systemic symptoms [Recovered/Resolved]
  - Hepatic steatosis [Recovered/Resolved]
  - Hepatotoxicity [Recovered/Resolved]
